FAERS Safety Report 18273672 (Version 1)
Quarter: 2020Q3

REPORT INFORMATION
  Report Type: Report from Study
  Country: JP (occurrence: JP)
  Receive Date: 20200916
  Receipt Date: 20200916
  Transmission Date: 20201103
  Serious: Yes (Hospitalization)
  Sender: FDA-Public Use
  Company Number: JP-GILEAD-2011-0046276

PATIENT
  Age: 34 Year
  Sex: Male

DRUGS (12)
  1. VALIXA [Concomitant]
     Active Substance: VALGANCICLOVIR
     Dosage: 1800 MG
     Dates: start: 20100415, end: 20100423
  2. PREZISTANAIVE [Suspect]
     Active Substance: DARUNAVIR
     Indication: HIV INFECTION
     Dosage: 800 MG, QD
     Route: 048
     Dates: start: 20100218
  3. ITRIZOLE [Concomitant]
     Active Substance: ITRACONAZOLE
     Dosage: 20 ML
     Dates: start: 20100610, end: 20100722
  4. VALIXA [Concomitant]
     Active Substance: VALGANCICLOVIR
     Dosage: 900 MG
     Dates: start: 20100515, end: 20101208
  5. BENAMBAX [Concomitant]
     Active Substance: PENTAMIDINE
     Indication: PROPHYLAXIS
     Dosage: 300 MG
     Dates: start: 20100409, end: 20110106
  6. VALIXA [Concomitant]
     Active Substance: VALGANCICLOVIR
     Indication: CYTOMEGALOVIRUS CHORIORETINITIS
     Dosage: 900 MG
     Dates: start: 20100408, end: 20100414
  7. SEISHOKU [Concomitant]
     Active Substance: SODIUM CHLORIDE
     Indication: CYTOMEGALOVIRUS CHORIORETINITIS
     Dosage: 100 ML
     Dates: start: 20100422, end: 20100514
  8. NORVIR [Suspect]
     Active Substance: RITONAVIR
     Indication: HIV INFECTION
     Dosage: 100 MG, QD
     Route: 048
     Dates: start: 20100218
  9. DAIPHEN [Concomitant]
     Active Substance: SULFAMETHOXAZOLE\TRIMETHOPRIM
     Indication: PROPHYLAXIS
     Dosage: 1 DOSAGE FORM
     Dates: start: 20100401, end: 20100408
  10. EMTRICITABINE;TENOFOVIR DISOPROXIL FUMARATE [Suspect]
     Active Substance: EMTRICITABINE\TENOFOVIR DISOPROXIL FUMARATE
     Indication: HIV INFECTION
     Dosage: 1 DF, QD
     Route: 048
     Dates: start: 20100218, end: 20101206
  11. ITRIZOLE [Concomitant]
     Active Substance: ITRACONAZOLE
     Indication: BRONCHOPULMONARY ASPERGILLOSIS
     Dosage: 20 ML
     Dates: start: 20100401, end: 20100408
  12. FOSCAVIR [Concomitant]
     Active Substance: FOSCARNET SODIUM
     Indication: CYTOMEGALOVIRUS CHORIORETINITIS
     Dosage: 7 G
     Dates: start: 20100422, end: 20100514

REACTIONS (2)
  - Immune reconstitution inflammatory syndrome [Recovering/Resolving]
  - Cytomegalovirus chorioretinitis [Recovering/Resolving]

NARRATIVE: CASE EVENT DATE: 20100408
